FAERS Safety Report 6285034-7 (Version None)
Quarter: 2009Q3

REPORT INFORMATION
  Report Type: 
  Country: None (occurrence: None)
  Receive Date: 20090723
  Receipt Date: 20090707
  Transmission Date: 20100115
  Serious: Yes (Other)
  Sender: FDA-Public Use
  Company Number: ACO_00569_2009

PATIENT
  Sex: Male
  Weight: 77 kg

DRUGS (3)
  1. SIRDALUD /00740702/ (SIRDALUD TIZANIDINE HYDROCHLORIDE) 2 MG (NOT SPEC [Suspect]
     Indication: NECK PAIN
     Dosage: (2 MG QD, AT NIGHT ORAL)
     Route: 048
     Dates: start: 19990101
  2. RIVOTRIL (RIVOTRIL - CLONAZEPAM) 0.5 MG (NOT SPECIFIED) [Suspect]
     Indication: PANIC DISORDER
     Dosage: (1 MG QD ORAL)
     Route: 048
     Dates: end: 20090601
  3. RADIOGRAPHY CONTRAST [Concomitant]

REACTIONS (10)
  - DEPRESSION [None]
  - DIZZINESS [None]
  - FIBROMYALGIA [None]
  - HYPOAESTHESIA [None]
  - INCREASED APPETITE [None]
  - MUSCULOSKELETAL DISCOMFORT [None]
  - NECK PAIN [None]
  - PAIN [None]
  - PANIC DISORDER [None]
  - WEIGHT INCREASED [None]
